FAERS Safety Report 5853904-7 (Version None)
Quarter: 2008Q3

REPORT INFORMATION
  Report Type: 
  Country: None (occurrence: None)
  Receive Date: 20080822
  Receipt Date: 20080815
  Transmission Date: 20090109
  Serious: Yes (Hospitalization)
  Sender: FDA-Public Use
  Company Number: A0743373A

PATIENT
  Age: 66 Year
  Sex: Male
  Weight: 81.8 kg

DRUGS (9)
  1. TOPOTECAN [Suspect]
     Indication: GLIOBLASTOMA MULTIFORME
     Dosage: .2MLH CONTINUOUS
     Route: 050
     Dates: start: 20080722, end: 20080726
  2. ZOLOFT [Concomitant]
     Dosage: 50MG PER DAY
  3. DAPSONE [Concomitant]
     Dosage: 100MG PER DAY
  4. COZAAR [Concomitant]
     Dosage: 25MG PER DAY
  5. SPIRIVA [Concomitant]
     Route: 055
  6. KEPPRA [Concomitant]
     Dosage: 1500MG PER DAY
  7. ADVAIR DISKUS 100/50 [Concomitant]
     Dosage: 1PUFF PER DAY
  8. DEXAMETHASONE TAB [Concomitant]
     Dosage: 4MG FOUR TIMES PER DAY
  9. DIAZEPAM [Concomitant]
     Dosage: 15MG AS REQUIRED

REACTIONS (4)
  - ASTHENIA [None]
  - COGNITIVE DISORDER [None]
  - FEELING ABNORMAL [None]
  - MENTAL STATUS CHANGES [None]
